FAERS Safety Report 4993459-2 (Version None)
Quarter: 2006Q2

REPORT INFORMATION
  Report Type: 
  Country: None (occurrence: None)
  Receive Date: 20060504
  Receipt Date: 20060504
  Transmission Date: 20061013
  Serious: Yes (Other)
  Sender: FDA-Public Use
  Company Number: None

PATIENT
  Age: 4 Year
  Sex: Male
  Weight: 18.5975 kg

DRUGS (1)
  1. DELSYM [Suspect]
     Indication: COUGH
     Dosage: 1/2 TEASPOONFUL EVERY 12 HOURS 1 PO [ONLY 4 TINMES]
     Route: 048
     Dates: start: 20060424, end: 20060430

REACTIONS (1)
  - HALLUCINATION, VISUAL [None]
